FAERS Safety Report 5141852-X (Version None)
Quarter: 2006Q4

REPORT INFORMATION
  Report Type: 
  Country: None (occurrence: None)
  Receive Date: 20061027
  Receipt Date: 20061012
  Transmission Date: 20070319
  Serious: Yes (Other)
  Sender: FDA-Public Use
  Company Number: CH200610002439

PATIENT
  Age: 35 Year
  Sex: Female

DRUGS (4)
  1. ZYPREXA [Suspect]
     Dosage: 10 MG DAILY (1/D) ; 5 MG DAILY (1/D)
     Dates: start: 20060510, end: 20060511
  2. ZYPREXA [Suspect]
     Dosage: 10 MG DAILY (1/D) ; 5 MG DAILY (1/D)
     Dates: start: 20060512, end: 20060531
  3. COZAAR PLUS (HYDROCHLOROTHIAZIDE, LOSARTAN POTASSIUM) [Concomitant]
  4. MINAC /SCH/ (MINOCYCLINE HYDROCHLORIDE) [Concomitant]

REACTIONS (5)
  - ALANINE AMINOTRANSFERASE INCREASED [None]
  - DERMATITIS ALLERGIC [None]
  - DYSPNOEA [None]
  - GAMMA-GLUTAMYLTRANSFERASE INCREASED [None]
  - SUPERINFECTION [None]
